FAERS Safety Report 19404886 (Version 1)
Quarter: 2021Q2

REPORT INFORMATION
  Report Type: Spontaneous
  Country: CN (occurrence: CN)
  Receive Date: 20210611
  Receipt Date: 20210611
  Transmission Date: 20210717
  Serious: Yes (Hospitalization, Other)
  Sender: FDA-Public Use
  Company Number: CN-LUPIN PHARMACEUTICALS INC.-2021-09255

PATIENT
  Age: 31 Year
  Sex: Female

DRUGS (20)
  1. IMIPENEM AND CILASTATIN [Suspect]
     Active Substance: CILASTATIN SODIUM\IMIPENEM
     Indication: SEPTIC SHOCK
     Dosage: 1 GRAM (FROM DAY 1 TO 14)
     Route: 065
     Dates: start: 20200202
  2. THYMALFASIN [Suspect]
     Active Substance: THYMALFASIN
     Indication: COVID-19 PNEUMONIA
     Dosage: 1.6 MILLIGRAM (FROM DAY 1 TO 17)
     Route: 065
     Dates: start: 20200202
  3. PROPOFOL. [Concomitant]
     Active Substance: PROPOFOL
     Indication: SEDATION
     Dosage: UNK
     Route: 065
     Dates: start: 202002
  4. HEPARIN [Suspect]
     Active Substance: HEPARIN SODIUM
     Indication: ANTICOAGULANT THERAPY
     Dosage: UNK
     Route: 065
  5. LOPINAVIR + RITONAVIR [Suspect]
     Active Substance: LOPINAVIR\RITONAVIR
     Indication: COVID-19 PNEUMONIA
     Dosage: 5M/12H FROM DAY 1 TO 4
     Route: 065
     Dates: start: 20200202
  6. CONVALESCENT PLASMA COVID?19 [Suspect]
     Active Substance: COVID-19 CONVALESCENT PLASMA
     Indication: COVID-19 PNEUMONIA
     Dosage: UNK (FROM DAY 18 TO 23)
     Route: 065
     Dates: start: 20200220
  7. CASPOFUNGIN [Concomitant]
     Active Substance: CASPOFUNGIN
     Indication: ANTI-INFECTIVE THERAPY
     Dosage: 50 MILLIGRAM, QD (FROM DAY 25 TO 33)
     Route: 065
     Dates: start: 20200227
  8. NOREPINEPHRINE. [Suspect]
     Active Substance: NOREPINEPHRINE
     Indication: SEPTIC SHOCK
     Dosage: 0.8 MICROGRAM/KILOGRAM
     Route: 065
     Dates: start: 20200202
  9. VORICONAZOLE. [Concomitant]
     Active Substance: VORICONAZOLE
     Indication: ANTI-INFECTIVE THERAPY
     Dosage: 200 MILLIGRAM (FROM DAY 8 TO 16)
     Route: 065
     Dates: start: 20200210
  10. TAZOBACTAM SODIUM AND PIPERACILLIN SODIUM [Concomitant]
     Active Substance: PIPERACILLIN SODIUM\TAZOBACTAM SODIUM
     Indication: ANTI-INFECTIVE THERAPY
     Dosage: 4.5 GRAM (FROM DAY 15 TO 33)
     Route: 065
     Dates: start: 20200217
  11. VANCOMYCIN [Suspect]
     Active Substance: VANCOMYCIN
     Indication: SEPTIC SHOCK
     Dosage: 100 INTERNATIONAL UNIT (FROM DAY 1?17)
     Route: 065
     Dates: start: 20200202
  12. RIBAVIRIN. [Suspect]
     Active Substance: RIBAVIRIN
     Indication: COVID-19 PNEUMONIA
     Dosage: 400 MILLIGRAM, QD (FROM DAY 1 TO 4)
     Route: 065
     Dates: start: 20200202
  13. CASPOFUNGIN [Concomitant]
     Active Substance: CASPOFUNGIN
     Indication: SEPTIC SHOCK
  14. MIDAZOLAM. [Concomitant]
     Active Substance: MIDAZOLAM
     Indication: SEDATION
     Dosage: UNK
     Route: 065
     Dates: start: 202002
  15. MORPHINE [Concomitant]
     Active Substance: MORPHINE
     Indication: SEDATION
     Dosage: UNK
     Route: 065
     Dates: start: 202002
  16. TAZOBACTAM SODIUM AND PIPERACILLIN SODIUM [Concomitant]
     Active Substance: PIPERACILLIN SODIUM\TAZOBACTAM SODIUM
     Indication: SEPTIC SHOCK
  17. LEVOFLOXACIN. [Suspect]
     Active Substance: LEVOFLOXACIN
     Indication: SEPTIC SHOCK
     Dosage: 500 MILLIGRAM, QD (FROM DAY 1 TO 7)
     Route: 065
     Dates: start: 20200202
  18. GAMMAGLOBULIN [Suspect]
     Active Substance: HUMAN IMMUNOGLOBULIN G
     Indication: COVID-19 PNEUMONIA
     Dosage: UNK, FROM DAY 1 TO 17; 10?30G/D
     Route: 065
     Dates: start: 20200202
  19. METHYLPREDNISOLONE. [Suspect]
     Active Substance: METHYLPREDNISOLONE
     Indication: SEPTIC SHOCK
     Dosage: FROM DAY 1?24; 20?40MG/D
     Route: 065
     Dates: start: 20200202
  20. VORICONAZOLE. [Concomitant]
     Active Substance: VORICONAZOLE
     Indication: SEPTIC SHOCK

REACTIONS (2)
  - Off label use [Unknown]
  - Drug ineffective [Unknown]

NARRATIVE: CASE EVENT DATE: 202002
